FAERS Safety Report 6984620-6 (Version None)
Quarter: 2010Q3

REPORT INFORMATION
  Report Type: 
  Country: None (occurrence: None)
  Receive Date: 20100915
  Receipt Date: 20100902
  Transmission Date: 20110219
  Serious: Yes (Other)
  Sender: FDA-Public Use
  Company Number: BR-PFIZER INC-2010111470

PATIENT
  Age: 69 Year
  Sex: Male

DRUGS (2)
  1. CHAMPIX [Suspect]
     Indication: TOBACCO USER
     Dosage: UNK
     Route: 048
     Dates: start: 20090101, end: 20090101
  2. FORMOTEROL W/BUDESONIDE [Concomitant]
     Indication: EMPHYSEMA
     Dosage: UNK
     Dates: start: 20070101

REACTIONS (1)
  - NERVOUSNESS [None]
